FAERS Safety Report 16149815 (Version 1)
Quarter: 2019Q2

REPORT INFORMATION
  Report Type: Spontaneous
  Country: US (occurrence: US)
  Receive Date: 20190402
  Receipt Date: 20190402
  Transmission Date: 20190711
  Serious: Yes (Hospitalization, Other)
  Sender: FDA-Public Use
  Company Number: US-ALEXION PHARMACEUTICALS INC.-A201904884

PATIENT
  Age: 24 Year
  Sex: Male

DRUGS (1)
  1. SOLIRIS [Suspect]
     Active Substance: ECULIZUMAB
     Indication: PAROXYSMAL NOCTURNAL HAEMOGLOBINURIA
     Dosage: UNK
     Route: 065

REACTIONS (12)
  - Meningitis enterococcal [Unknown]
  - Red blood cell morphology abnormal [Unknown]
  - Device related infection [Unknown]
  - Pneumococcal sepsis [Unknown]
  - Splenic infarction [Unknown]
  - Sepsis [Unknown]
  - Hyposplenism [Unknown]
  - Staphylococcal bacteraemia [Unknown]
  - Spleen atrophy [Unknown]
  - Staphylococcal sepsis [Unknown]
  - Red blood cell acanthocytes present [Unknown]
  - Pneumonia pneumococcal [Unknown]
